FAERS Safety Report 14775628 (Version 1)
Quarter: 2018Q2

REPORT INFORMATION
  Report Type: Report from Study
  Country: US (occurrence: US)
  Receive Date: 20180418
  Receipt Date: 20180418
  Transmission Date: 20180711
  Serious: Yes (Death, Hospitalization, Other)
  Sender: FDA-Public Use
  Company Number: US-JNJFOC-20171123742

PATIENT
  Age: 80 Year
  Sex: Female

DRUGS (25)
  1. PENTASA [Concomitant]
     Active Substance: MESALAMINE
     Dosage: 2000 MG (OF 500 MG), BID
     Route: 048
  2. PRILOSEC [Concomitant]
     Active Substance: OMEPRAZOLE MAGNESIUM
     Route: 048
  3. CEFTIN [Concomitant]
     Active Substance: CEFUROXIME AXETIL
     Dates: start: 20170629
  4. PRILOSEC [Concomitant]
     Active Substance: OMEPRAZOLE MAGNESIUM
     Dosage: 2000 MG (OF 500 MG)
     Route: 048
  5. IMBRUVICA [Suspect]
     Active Substance: IBRUTINIB
     Indication: BREAST CANCER FEMALE
     Route: 048
     Dates: start: 20170714
  6. ENTOCORT [Concomitant]
     Active Substance: BUDESONIDE
     Dosage: 3 (3 MG) DAILY
     Route: 048
  7. ALLOPURINOL. [Concomitant]
     Active Substance: ALLOPURINOL
     Route: 048
     Dates: start: 20170712
  8. PHENOBARBITAL. [Concomitant]
     Active Substance: PHENOBARBITAL
     Route: 048
     Dates: end: 20170802
  9. INDERAL [Concomitant]
     Active Substance: PROPRANOLOL HYDROCHLORIDE
     Route: 048
  10. ZANTAC [Concomitant]
     Active Substance: RANITIDINE HYDROCHLORIDE
     Dosage: 300 MG, AT BEDTIME
     Route: 048
  11. CARAFATE [Concomitant]
     Active Substance: SUCRALFATE
     Route: 048
  12. IMBRUVICA [Suspect]
     Active Substance: IBRUTINIB
     Indication: BREAST CANCER FEMALE
     Route: 048
  13. POTASSIUM CHLORIDE. [Concomitant]
     Active Substance: POTASSIUM CHLORIDE
     Route: 048
  14. ATIVAN [Concomitant]
     Active Substance: LORAZEPAM
     Dates: end: 20170802
  15. LINEZOLID. [Concomitant]
     Active Substance: LINEZOLID
     Route: 048
     Dates: start: 20170822, end: 20170905
  16. IRON [Concomitant]
     Active Substance: IRON
     Dosage: 1 CAPSULE ORAL TID
     Route: 048
  17. CALTRATE [Concomitant]
     Active Substance: CALCIUM CARBONATE
  18. NORMAL SALINE [Concomitant]
     Active Substance: SODIUM CHLORIDE
     Dates: start: 20170824
  19. LASIX [Concomitant]
     Active Substance: FUROSEMIDE
     Route: 048
  20. FERGON [Concomitant]
     Active Substance: FERROUS GLUCONATE
     Dosage: (240(27 FE)MG), QD
     Route: 048
  21. LIPITOR [Concomitant]
     Active Substance: ATORVASTATIN CALCIUM
     Route: 048
  22. ENTOCORT EC [Concomitant]
     Active Substance: BUDESONIDE
     Route: 048
  23. ATIVAN [Concomitant]
     Active Substance: LORAZEPAM
  24. ELIQUIS [Concomitant]
     Active Substance: APIXABAN
     Route: 048
  25. CALCIUM CARBONATE W/COLECALCIFEROL [Concomitant]
     Active Substance: CALCIUM CARBONATE\CHOLECALCIFEROL
     Dosage: 600/400MG, BID
     Route: 048

REACTIONS (6)
  - Chronic kidney disease [Unknown]
  - Product use in unapproved indication [Unknown]
  - Off label use [Unknown]
  - Abnormal loss of weight [Unknown]
  - Thrombocytopenia [Unknown]
  - Death [Fatal]

NARRATIVE: CASE EVENT DATE: 20170714
